FAERS Safety Report 13689058 (Version 1)
Quarter: 2017Q2

REPORT INFORMATION
  Report Type: Spontaneous
  Country: US (occurrence: US)
  Receive Date: 20170624
  Receipt Date: 20170624
  Transmission Date: 20170830
  Serious: Yes (Life-Threatening, Hospitalization, Disabling)
  Sender: FDA-Public Use
  Company Number: None

PATIENT
  Age: 35 Year
  Sex: Female
  Weight: 72 kg

DRUGS (3)
  1. NUVARING [Suspect]
     Active Substance: ETHINYL ESTRADIOL\ETONOGESTREL
     Indication: CONTRACEPTION
     Dosage: ?          QUANTITY:1 RING;OTHER FREQUENCY:EVERY 3 WEEKS;?
     Route: 067
     Dates: start: 20110829, end: 20161009
  2. ELIQUIS [Concomitant]
     Active Substance: APIXABAN
  3. MULTI--VITAMIN [Concomitant]

REACTIONS (5)
  - Retinal detachment [None]
  - Deep vein thrombosis [None]
  - Pulmonary embolism [None]
  - Blindness unilateral [None]
  - Retinoschisis [None]

NARRATIVE: CASE EVENT DATE: 20161006
